FAERS Safety Report 14519166 (Version 1)
Quarter: 2018Q1

REPORT INFORMATION
  Report Type: Spontaneous
  Country: IN (occurrence: IN)
  Receive Date: 20180212
  Receipt Date: 20180212
  Transmission Date: 20180509
  Serious: Yes (Other)
  Sender: FDA-Public Use
  Company Number: IN-PFIZER INC-2018058064

PATIENT
  Age: 74 Year
  Sex: Female

DRUGS (6)
  1. FEMAR [Concomitant]
     Active Substance: LETROZOLE
     Dosage: UNK
  2. AROMASIN [Suspect]
     Active Substance: EXEMESTANE
     Indication: BREAST CANCER
     Dosage: 25 MG, DAILY X 3 MONTHS
     Route: 048
     Dates: start: 201403
  3. TAMOXIFEN [Concomitant]
     Active Substance: TAMOXIFEN
     Dosage: UNK
  4. AZITHRAL [Concomitant]
     Dosage: 100 UNK, UNK
  5. GRILINCTUS BM [Concomitant]
     Dosage: UNK, 1 TSF, (X 5 DAY)
  6. BEVON [Concomitant]
     Dosage: 100 MG, UNK (X 1 MONTH)

REACTIONS (3)
  - Cough [Unknown]
  - Haemorrhage [Unknown]
  - Asthenia [Unknown]
